FAERS Safety Report 8325052-8 (Version None)
Quarter: 2012Q2

REPORT INFORMATION
  Report Type: 
  Country: None (occurrence: None)
  Receive Date: 20120427
  Receipt Date: 20120413
  Transmission Date: 20120825
  Serious: Yes (Other)
  Sender: FDA-Public Use
  Company Number: 2012MA005103

PATIENT
  Age: 61 Year
  Sex: Male

DRUGS (8)
  1. SALMETEROL [Concomitant]
  2. VENTOLIN [Concomitant]
  3. FELODIPINE [Concomitant]
  4. SIMVASTATIN [Concomitant]
  5. RAMIPRIL [Suspect]
     Dates: start: 20120319
  6. NAPROXEN [Concomitant]
  7. PIROXICAM [Concomitant]
  8. CO-DYDRAMOL [Concomitant]

REACTIONS (2)
  - DEPRESSION [None]
  - SUICIDAL IDEATION [None]
